FAERS Safety Report 23242226 (Version 1)
Quarter: 2023Q4

REPORT INFORMATION
  Report Type: Spontaneous
  Country: US (occurrence: US)
  Receive Date: 20231129
  Receipt Date: 20231129
  Transmission Date: 20240110
  Serious: No
  Sender: FDA-Public Use
  Company Number: US-009507513-2311USA008537

PATIENT
  Age: 30 Year
  Sex: Female

DRUGS (2)
  1. KEYTRUDA [Suspect]
     Active Substance: PEMBROLIZUMAB
     Indication: Adrenal gland cancer
     Dosage: UNK
  2. MITOTANE [Concomitant]
     Active Substance: MITOTANE
     Indication: Adrenal gland cancer

REACTIONS (1)
  - Product use in unapproved indication [Unknown]
